FAERS Safety Report 8157577-2 (Version None)
Quarter: 2012Q1

REPORT INFORMATION
  Report Type: 
  Country: None (occurrence: None)
  Receive Date: 20120222
  Receipt Date: 20110901
  Transmission Date: 20120608
  Serious: No
  Sender: FDA-Public Use
  Company Number: US-ASTRAZENECA-2011SE52791

PATIENT
  Sex: Female

DRUGS (1)
  1. TENORMIN [Suspect]
     Indication: MYOCARDIAL INFARCTION
     Dosage: HALF TABLET IN THE MORNING AND HALF AT NIGHT
     Route: 048
     Dates: start: 19970101

REACTIONS (7)
  - HALLUCINATION [None]
  - AMNESIA [None]
  - RASH VESICULAR [None]
  - PSYCHOTIC DISORDER [None]
  - HALLUCINATION, AUDITORY [None]
  - CONFUSIONAL STATE [None]
  - WRONG TECHNIQUE IN DRUG USAGE PROCESS [None]
